FAERS Safety Report 12206099 (Version 3)
Quarter: 2016Q3

REPORT INFORMATION
  Report Type: Other
  Country: FR (occurrence: FR)
  Receive Date: 20160324
  Receipt Date: 20160711
  Transmission Date: 20161109
  Serious: Yes (Life-Threatening, Other)
  Sender: FDA-Public Use
  Company Number: FR-TAKEDA-2016TUS004687

PATIENT
  Age: 50 Year
  Sex: Female
  Weight: 46 kg

DRUGS (7)
  1. UVEDOSE [Concomitant]
     Active Substance: CHOLECALCIFEROL
  2. PANCREATIN [Concomitant]
     Active Substance: PANCRELIPASE
  3. ALVITYL                            /02362701/ [Concomitant]
  4. PURINETHOL [Suspect]
     Active Substance: MERCAPTOPURINE
     Indication: CROHN^S DISEASE
     Dosage: 50 MG, QD
     Route: 048
     Dates: start: 20150325, end: 201601
  5. VITAMIN K [Concomitant]
     Active Substance: PHYTONADIONE
  6. TOCO [Concomitant]
     Active Substance: UNSPECIFIED INGREDIENT
  7. ENTYVIO [Suspect]
     Active Substance: VEDOLIZUMAB
     Indication: CROHN^S DISEASE
     Dosage: 300 MG, UNK
     Route: 042
     Dates: start: 20150201, end: 20151229

REACTIONS (1)
  - Adenocarcinoma pancreas [Unknown]

NARRATIVE: CASE EVENT DATE: 20151229
